FAERS Safety Report 16690175 (Version 1)
Quarter: 2019Q3

REPORT INFORMATION
  Report Type: Spontaneous
  Country: US (occurrence: US)
  Receive Date: 20190809
  Receipt Date: 20190809
  Transmission Date: 20191004
  Serious: Yes (Hospitalization, Other)
  Sender: FDA-Public Use
  Company Number: US-AMGEN-USASP2019123771

PATIENT
  Age: 50 Year
  Sex: Male
  Weight: 62.13 kg

DRUGS (1)
  1. PROLIA [Suspect]
     Active Substance: DENOSUMAB
     Indication: OSTEOPOROSIS
     Dosage: UNK
     Route: 065

REACTIONS (8)
  - Post procedural infection [Unknown]
  - Hernia repair [Unknown]
  - Hernia [Unknown]
  - Abdominal abscess [Unknown]
  - Accidental exposure to product [Unknown]
  - Muscle strain [Unknown]
  - Tooth infection [Unknown]
  - Post procedural complication [Unknown]

NARRATIVE: CASE EVENT DATE: 2018
